FAERS Safety Report 4409708-5 (Version None)
Quarter: 2004Q3

REPORT INFORMATION
  Report Type: 
  Country: None (occurrence: None)
  Receive Date: 20040727
  Receipt Date: 20040727
  Transmission Date: 20050211
  Serious: Yes (Other)
  Sender: FDA-Public Use
  Company Number: None

PATIENT
  Age: 54 Year
  Sex: Female
  Weight: 69 kg

DRUGS (2)
  1. GAMMAGARD [Suspect]
     Indication: CHRONIC LYMPHOCYTIC LEUKAEMIA
     Dosage: 20 GM IV Q MONTH
     Route: 042
     Dates: start: 20040712
  2. GAMMAGARD [Suspect]
     Indication: CYTOMEGALOVIRUS INFECTION
     Dosage: 20 GM IV Q MONTH
     Route: 042
     Dates: start: 20040712

REACTIONS (2)
  - CHILLS [None]
  - INFUSION RELATED REACTION [None]
